FAERS Safety Report 16083596 (Version 1)
Quarter: 2019Q2

REPORT INFORMATION
  Report Type: Spontaneous
  Country: US (occurrence: US)
  Receive Date: 20190315
  Receipt Date: 20190315
  Transmission Date: 20190711
  Serious: Yes (Other)
  Sender: FDA-Public Use
  Company Number: None

PATIENT

DRUGS (1)
  1. KETAMINE [Suspect]
     Active Substance: KETAMINE

REACTIONS (4)
  - Drug ineffective [None]
  - Drug abuse [None]
  - Depression [None]
  - Incorrect route of product administration [None]

NARRATIVE: CASE EVENT DATE: 20160801
